FAERS Safety Report 8531205 (Version 2)
Quarter: 2012Q4

REPORT INFORMATION
  Report Type: 
  Country: US (occurrence: US)
  Receive Date: 20120426
  Receipt Date: 20120913
  Transmission Date: 20130627
  Serious: Yes (Life-Threatening, Hospitalization)
  Sender: FDA-Public Use
  Company Number: US-BAYER-2012-038700

PATIENT
  Age: 25 Year
  Sex: Female
  Weight: 40.82 kg

DRUGS (1)
  1. YAZ [Suspect]
     Indication: CONTRACEPTION
     Dosage: UNK
     Dates: start: 201011

REACTIONS (6)
  - Pulmonary embolism [None]
  - Pulmonary embolism [None]
  - Pain [None]
  - Injury [None]
  - Dyspnoea [None]
  - Pain [None]
